FAERS Safety Report 8850497 (Version 1)
Quarter: 2012Q4

REPORT INFORMATION
  Report Type: Report from Study
  Country: DE (occurrence: DE)
  Receive Date: 20121019
  Receipt Date: 20121019
  Transmission Date: 20130627
  Serious: Yes (Death, Hospitalization)
  Sender: FDA-Public Use
  Company Number: DE-ROCHE-1146431

PATIENT
  Sex: Female
  Weight: 65 kg

DRUGS (9)
  1. BEVACIZUMAB [Suspect]
     Indication: COLON CANCER
     Route: 042
     Dates: start: 20120123, end: 20120709
  2. FOLINIC ACID [Suspect]
     Indication: COLON CANCER
     Route: 042
     Dates: start: 20120123, end: 20120709
  3. OXALIPLATIN [Suspect]
     Indication: COLON CANCER
     Route: 042
     Dates: start: 20120123, end: 20120709
  4. FLUOROURACIL [Suspect]
     Indication: COLON CANCER
     Route: 042
     Dates: start: 20120123, end: 20120709
  5. ONDANSETRON [Concomitant]
     Indication: PROPHYLAXIS
     Route: 042
     Dates: start: 20120123, end: 20120709
  6. DEXAMETHASONE [Concomitant]
     Indication: PROPHYLAXIS
     Route: 042
     Dates: start: 20120123, end: 20120709
  7. BISOPROLOL [Concomitant]
     Indication: HYPERTENSION
     Route: 048
  8. LOSARTAN [Concomitant]
     Indication: HYPERTENSION
     Route: 048
  9. MIRTAZAPIN [Concomitant]
     Indication: HYPERTENSION
     Route: 048

REACTIONS (10)
  - Hepatic artery occlusion [Fatal]
  - Hepatic failure [Fatal]
  - General physical health deterioration [Recovered/Resolved]
  - Vomiting [Recovered/Resolved]
  - Metastases to liver [Unknown]
  - Polyneuropathy [Unknown]
  - Pulmonary function test decreased [Recovering/Resolving]
  - Small-for-size liver syndrome [Recovering/Resolving]
  - Renal failure acute [Recovering/Resolving]
  - Hepatic necrosis [Recovered/Resolved]
